FAERS Safety Report 6844960-8 (Version None)
Quarter: 2010Q3

REPORT INFORMATION
  Report Type: 
  Country: None (occurrence: None)
  Receive Date: 20100715
  Receipt Date: 20100705
  Transmission Date: 20110219
  Serious: Yes (Hospitalization)
  Sender: FDA-Public Use
  Company Number: JP-ELI_LILLY_AND_COMPANY-JP201004002232

PATIENT
  Sex: Female
  Weight: 46 kg

DRUGS (6)
  1. ALIMTA [Suspect]
     Indication: LUNG ADENOCARCINOMA STAGE II
     Dosage: 692 MG, OTHER
     Route: 042
     Dates: start: 20100325, end: 20100325
  2. CARBOPLATIN [Concomitant]
     Indication: LUNG ADENOCARCINOMA STAGE II
     Dosage: 388 MG, OTHER
     Route: 042
     Dates: start: 20100325, end: 20100325
  3. PANVITAN [Concomitant]
     Dosage: 1 G, DAILY (1/D)
     Route: 048
     Dates: start: 20100318
  4. MUCOSTA [Concomitant]
     Indication: PROPHYLAXIS
     Dosage: 300 MG, DAILY (1/D)
     Route: 048
     Dates: start: 20091125
  5. PREDONINE [Concomitant]
     Indication: PNEUMONITIS
     Dosage: 2.5 MG, DAILY (1/D)
     Route: 048
     Dates: start: 20100303, end: 20100323
  6. VITAMIN B-12 [Concomitant]
     Dosage: UNK, OTHER
     Route: 065
     Dates: start: 20100318, end: 20100318

REACTIONS (2)
  - PERICARDITIS [None]
  - PLATELET COUNT DECREASED [None]
